FAERS Safety Report 6245362-8 (Version None)
Quarter: 2009Q2

REPORT INFORMATION
  Report Type: 
  Country: None (occurrence: None)
  Receive Date: 20090625
  Receipt Date: 20090619
  Transmission Date: 20091009
  Serious: Yes (Other)
  Sender: FDA-Public Use
  Company Number: RU-ALLERGAN-0907213US

PATIENT
  Age: 35 Year
  Sex: Female

DRUGS (1)
  1. BOTOX [Suspect]
     Indication: DRUG USE FOR UNKNOWN INDICATION
     Dosage: 35 UNITS, SINGLE
     Route: 030
     Dates: start: 20090425, end: 20090425

REACTIONS (6)
  - CERVICOBRACHIAL SYNDROME [None]
  - DIPLOPIA [None]
  - PARESIS CRANIAL NERVE [None]
  - RADICULOPATHY [None]
  - STRABISMUS [None]
  - VITH NERVE DISORDER [None]
